FAERS Safety Report 15895422 (Version 5)
Quarter: 2021Q2

REPORT INFORMATION
  Report Type: Spontaneous
  Country: JP (occurrence: JP)
  Receive Date: 20190131
  Receipt Date: 20210602
  Transmission Date: 20210716
  Serious: Yes (Death, Life-Threatening, Hospitalization, Other)
  Sender: FDA-Public Use
  Company Number: JP-BRISTOL-MYERS SQUIBB COMPANY-BMS-2019-007682

PATIENT
  Age: 69 Year
  Sex: Female
  Weight: 39.5 kg

DRUGS (1)
  1. OPDIVO [Suspect]
     Active Substance: NIVOLUMAB
     Indication: GASTRIC CANCER
     Dosage: 120 MILLIGRAM, Q2WK
     Route: 041
     Dates: start: 20180622, end: 20180622

REACTIONS (5)
  - Malignant neoplasm progression [Fatal]
  - Ascites [Unknown]
  - Platelet count decreased [Fatal]
  - Decreased appetite [Unknown]
  - Prescribed overdose [Unknown]

NARRATIVE: CASE EVENT DATE: 20180629
